FAERS Safety Report 7009230-6 (Version None)
Quarter: 2010Q3

REPORT INFORMATION
  Report Type: 
  Country: None (occurrence: None)
  Receive Date: 20100923
  Receipt Date: 20100909
  Transmission Date: 20110219
  Serious: Yes (Hospitalization)
  Sender: FDA-Public Use
  Company Number: JP-RANBAXY-2010RR-38228

PATIENT
  Age: 39 Year
  Sex: Female

DRUGS (2)
  1. ACETAMINOPHEN [Suspect]
  2. CRAVIT [Suspect]
     Indication: UPPER RESPIRATORY TRACT INFLAMMATION
     Dosage: 100 MG, TID
     Route: 048
     Dates: start: 20100407, end: 20100507

REACTIONS (3)
  - PHOTOSENSITIVITY REACTION [None]
  - THROMBOCYTOPENIA [None]
  - TOXIC SKIN ERUPTION [None]
